FAERS Safety Report 8077337-0 (Version None)
Quarter: 2012Q1

REPORT INFORMATION
  Report Type: 
  Country: None (occurrence: None)
  Receive Date: 20120127
  Receipt Date: 20120124
  Transmission Date: 20120608
  Serious: Yes (Death)
  Sender: FDA-Public Use
  Company Number: PHEH2012US002124

PATIENT
  Sex: Female

DRUGS (2)
  1. VALTURNA [Suspect]
     Dosage: UNK
  2. UNKNOWN MEDICATIONS [Concomitant]

REACTIONS (1)
  - DEATH [None]
